FAERS Safety Report 9395526 (Version 1)
Quarter: 2013Q3

REPORT INFORMATION
  Report Type: Report from Study
  Country: BR (occurrence: BR)
  Receive Date: 20130711
  Receipt Date: 20130711
  Transmission Date: 20140515
  Serious: Yes (Life-Threatening, Other)
  Sender: FDA-Public Use
  Company Number: PHHY2013BR073361

PATIENT
  Sex: Female
  Weight: 61 kg

DRUGS (7)
  1. EXELON PATCH [Suspect]
     Indication: MEMORY IMPAIRMENT
     Dosage: 4.6 MG, DAILY
     Route: 062
     Dates: start: 20130528, end: 20130628
  2. ALCYTAM [Concomitant]
     Dosage: UNK UKN, UNK
     Dates: start: 20130528
  3. BENERVA [Concomitant]
     Dosage: UNK
  4. VITAMIN D [Concomitant]
     Dosage: UNK
  5. GALVUS [Concomitant]
     Indication: DIABETES MELLITUS
     Dosage: UNK UKN, UNK
     Dates: start: 201306
  6. LOSARTAN [Concomitant]
     Dosage: UNK UKN, UNK
  7. ANTI ALLERGIC AGENTS [Concomitant]
     Dosage: UNK UKN, UNK
     Dates: start: 201306

REACTIONS (16)
  - Apparent death [Recovering/Resolving]
  - Head injury [Recovering/Resolving]
  - Diabetes mellitus [Unknown]
  - Swollen tongue [Recovering/Resolving]
  - Eye swelling [Recovering/Resolving]
  - Eye pain [Recovering/Resolving]
  - Glossodynia [Recovering/Resolving]
  - Laryngospasm [Recovering/Resolving]
  - Muscle contracture [Recovering/Resolving]
  - Nervous system disorder [Recovering/Resolving]
  - Malaise [Recovering/Resolving]
  - Hypersensitivity [Recovering/Resolving]
  - Fall [Recovering/Resolving]
  - Syncope [Recovering/Resolving]
  - Feeling abnormal [Recovering/Resolving]
  - Weight decreased [Recovering/Resolving]
